FAERS Safety Report 9197126 (Version 2)
Quarter: 2013Q4

REPORT INFORMATION
  Report Type: Spontaneous
  Country: US (occurrence: US)
  Receive Date: 20130328
  Receipt Date: 20131126
  Transmission Date: 20140711
  Serious: Yes (Other)
  Sender: FDA-Public Use
  Company Number: US-BAYER-2013-038849

PATIENT
  Age: 29 Year
  Sex: Female

DRUGS (6)
  1. YAZ [Suspect]
     Indication: MENSTRUATION IRREGULAR
     Dosage: UNK
  2. YASMIN [Suspect]
     Dosage: UNK
  3. OCELLA [Suspect]
     Dosage: UNK
  4. LORTAB [Concomitant]
     Indication: PAIN
     Dosage: 5/500, ONE OR TWO EVERY 4 HOURS AS NEEDED
  5. ZOFRAN [Concomitant]
     Dosage: 4 MG, 1-2 EVERY 8 HOURS AS NEEDED
     Route: 048
  6. SEASONIQUE [Concomitant]

REACTIONS (5)
  - Gallbladder injury [None]
  - Cholecystitis [None]
  - Injury [None]
  - Pain [None]
  - Pain [None]
